FAERS Safety Report 11719556 (Version 2)
Quarter: 2015Q4

REPORT INFORMATION
  Report Type: Spontaneous
  Country: ES (occurrence: ES)
  Receive Date: 20151110
  Receipt Date: 20151118
  Transmission Date: 20160304
  Serious: Yes (Hospitalization)
  Sender: FDA-Public Use
  Company Number: ES-SA-2015SA172647

PATIENT
  Age: 83 Year
  Sex: Female

DRUGS (4)
  1. CLEXANE [Suspect]
     Active Substance: ENOXAPARIN SODIUM
     Indication: ARRHYTHMIA
     Route: 058
     Dates: start: 20151007, end: 20151007
  2. SINTROM [Suspect]
     Active Substance: ACENOCOUMAROL
     Indication: ARRHYTHMIA
     Route: 065
  3. CLEXANE [Suspect]
     Active Substance: ENOXAPARIN SODIUM
     Indication: ARRHYTHMIA
     Route: 058
     Dates: start: 20151008, end: 20151009
  4. PARACETAMOL [Concomitant]
     Active Substance: ACETAMINOPHEN
     Indication: PAIN
     Route: 065

REACTIONS (3)
  - Cardio-respiratory arrest [Recovered/Resolved]
  - Renal failure [Recovered/Resolved]
  - Haematoma [Recovered/Resolved]

NARRATIVE: CASE EVENT DATE: 201510
